FAERS Safety Report 5120499-5 (Version None)
Quarter: 2006Q4

REPORT INFORMATION
  Report Type: 
  Country: None (occurrence: None)
  Receive Date: 20061004
  Receipt Date: 20060916
  Transmission Date: 20070319
  Serious: Yes (Death)
  Sender: FDA-Public Use
  Company Number: IR-SANOFI-SYNTHELABO-A01200608145

PATIENT
  Sex: Female
  Weight: 45 kg

DRUGS (2)
  1. FLUOROURACIL [Suspect]
     Indication: RECTAL CANCER
     Route: 042
     Dates: start: 20060812, end: 20060812
  2. ELOXATIN [Suspect]
     Indication: RECTAL CANCER
     Route: 042
     Dates: start: 20060812, end: 20060812

REACTIONS (7)
  - ANAEMIA [None]
  - DISSEMINATED INTRAVASCULAR COAGULATION [None]
  - PURPURA [None]
  - PYREXIA [None]
  - QUADRIPARESIS [None]
  - RECTAL HAEMORRHAGE [None]
  - THROMBOCYTOPENIA [None]
